FAERS Safety Report 25965052 (Version 2)
Quarter: 2025Q4

REPORT INFORMATION
  Report Type: Spontaneous
  Country: US (occurrence: US)
  Receive Date: 20251027
  Receipt Date: 20251110
  Transmission Date: 20260118
  Serious: Yes (Hospitalization)
  Sender: ELI LILLY AND COMPANY
  Company Number: US-ELI_LILLY_AND_COMPANY-US202510023060

PATIENT
  Age: 64 Year
  Sex: Female

DRUGS (20)
  1. CYMBALTA [Interacting]
     Active Substance: DULOXETINE HYDROCHLORIDE
     Indication: Product used for unknown indication
     Dosage: UNK, UNKNOWN
     Route: 065
  2. INGREZZA [Interacting]
     Active Substance: VALBENAZINE DITOSYLATE
     Indication: Tardive dyskinesia
     Dosage: 60 MG, DAILY
     Route: 048
     Dates: start: 20230130, end: 20230605
  3. INGREZZA [Interacting]
     Active Substance: VALBENAZINE DITOSYLATE
     Dosage: 80 MG, DAILY
     Route: 048
     Dates: start: 20230606, end: 20240502
  4. INGREZZA [Interacting]
     Active Substance: VALBENAZINE DITOSYLATE
     Dosage: 40 MG, DAILY
     Route: 048
     Dates: start: 20240726, end: 20240813
  5. INGREZZA [Interacting]
     Active Substance: VALBENAZINE DITOSYLATE
     Dosage: 80 MG, DAILY
     Route: 048
     Dates: start: 20240814, end: 20250516
  6. INGREZZA [Interacting]
     Active Substance: VALBENAZINE DITOSYLATE
     Dosage: 40 MG, DAILY
     Route: 048
     Dates: start: 20250517, end: 20250616
  7. INGREZZA [Interacting]
     Active Substance: VALBENAZINE DITOSYLATE
     Dosage: 80 MG, DAILY
     Route: 048
     Dates: start: 20250623
  8. TRAZODONE [Interacting]
     Active Substance: TRAZODONE HYDROCHLORIDE
     Indication: Product used for unknown indication
     Dosage: UNK, UNKNOWN
     Route: 065
  9. MIRTAZAPINE [Interacting]
     Active Substance: MIRTAZAPINE
     Indication: Product used for unknown indication
     Dosage: UNK, UNKNOWN
     Route: 065
  10. AMLODIPINE [Concomitant]
     Active Substance: AMLODIPINE BESYLATE
     Indication: Product used for unknown indication
     Dosage: UNK, UNKNOWN
     Route: 065
  11. ATORVASTATIN [Concomitant]
     Active Substance: ATORVASTATIN
     Indication: Product used for unknown indication
     Dosage: UNK, UNKNOWN
     Route: 065
  12. BASAGLAR [Concomitant]
     Active Substance: INSULIN GLARGINE
     Indication: Product used for unknown indication
     Dosage: UNK, UNKNOWN
     Route: 065
  13. ESCITALOPRAM [Concomitant]
     Active Substance: ESCITALOPRAM OXALATE
     Indication: Product used for unknown indication
     Dosage: UNK, UNKNOWN
     Route: 065
  14. HUMALOG [Concomitant]
     Active Substance: INSULIN LISPRO
     Indication: Product used for unknown indication
     Dosage: UNK, UNKNOWN
     Route: 065
  15. LABETALOL [Concomitant]
     Active Substance: LABETALOL
     Indication: Product used for unknown indication
     Dosage: UNK, UNKNOWN
     Route: 065
  16. LANTUS [Concomitant]
     Active Substance: INSULIN GLARGINE
     Indication: Product used for unknown indication
     Dosage: UNK, UNKNOWN
     Route: 065
  17. LOVASTATIN [Concomitant]
     Active Substance: LOVASTATIN
     Indication: Product used for unknown indication
     Dosage: UNK, UNKNOWN
     Route: 065
  18. CARBIDOPA [Concomitant]
     Active Substance: CARBIDOPA
     Indication: Parkinson^s disease
     Dosage: UNK, UNKNOWN
     Route: 065
  19. LEVODOPA [Concomitant]
     Active Substance: LEVODOPA
     Indication: Parkinson^s disease
     Dosage: UNK, UNKNOWN
     Route: 065
  20. AMANTADINE [Concomitant]
     Active Substance: AMANTADINE
     Indication: Parkinson^s disease
     Dosage: UNK, UNKNOWN
     Route: 065

REACTIONS (4)
  - Arrhythmia [Unknown]
  - Drug interaction [Unknown]
  - Loss of consciousness [Unknown]
  - Vomiting [Unknown]

NARRATIVE: CASE EVENT DATE: 20250901
